FAERS Safety Report 20615630 (Version 1)
Quarter: 2022Q1

REPORT INFORMATION
  Report Type: Report from Study
  Country: BR (occurrence: BR)
  Receive Date: 20220321
  Receipt Date: 20220321
  Transmission Date: 20220423
  Serious: Yes (Disabling, Other)
  Sender: FDA-Public Use
  Company Number: BR-ABBVIE-22K-020-4323477-00

PATIENT
  Age: 61 Year
  Sex: Female
  Weight: 85 kg

DRUGS (4)
  1. RINVOQ [Suspect]
     Active Substance: UPADACITINIB
     Indication: Rheumatoid arthritis
     Route: 048
     Dates: start: 20210619, end: 202112
  2. COVID-19 VACCINE [Concomitant]
     Indication: COVID-19 immunisation
     Route: 030
  3. COVID-19 VACCINE [Concomitant]
     Route: 030
  4. COVID-19 VACCINE [Concomitant]
     Route: 030
     Dates: start: 202201, end: 202201

REACTIONS (8)
  - Syncope [Recovered/Resolved]
  - Upper limb fracture [Recovering/Resolving]
  - Syncope [Recovered/Resolved]
  - Alopecia [Recovered/Resolved]
  - Pain in extremity [Not Recovered/Not Resolved]
  - Peripheral swelling [Not Recovered/Not Resolved]
  - Intentional product misuse [Unknown]
  - Headache [Unknown]

NARRATIVE: CASE EVENT DATE: 20210729
